FAERS Safety Report 21971475 (Version 1)
Quarter: 2023Q1

REPORT INFORMATION
  Report Type: Spontaneous
  Country: US (occurrence: US)
  Receive Date: 20230209
  Receipt Date: 20230209
  Transmission Date: 20230418
  Serious: No
  Sender: FDA-Public Use
  Company Number: US-GSK-US2023AMR015561

PATIENT
  Sex: Female

DRUGS (2)
  1. IMITREX [Suspect]
     Active Substance: SUMATRIPTAN SUCCINATE
     Indication: Product used for unknown indication
     Dosage: UNK
  2. IMITREX [Suspect]
     Active Substance: SUMATRIPTAN SUCCINATE

REACTIONS (3)
  - Headache [Unknown]
  - Product availability issue [Unknown]
  - Product dose omission issue [Unknown]
